FAERS Safety Report 9877300 (Version 3)
Quarter: 2014Q2

REPORT INFORMATION
  Report Type: Spontaneous
  Country: DE (occurrence: DE)
  Receive Date: 20140206
  Receipt Date: 20140506
  Transmission Date: 20141212
  Serious: Yes (Other)
  Sender: FDA-Public Use
  Company Number: DE-JNJFOC-20140202826

PATIENT
  Age: 76 Year
  Sex: Female

DRUGS (5)
  1. XARELTO [Suspect]
     Indication: CEREBROVASCULAR ACCIDENT PROPHYLAXIS
     Route: 048
     Dates: start: 20140120, end: 20140124
  2. XARELTO [Suspect]
     Indication: AORTIC STENOSIS
     Route: 048
     Dates: start: 20140120, end: 20140124
  3. XARELTO [Suspect]
     Indication: ATRIAL FIBRILLATION
     Route: 048
     Dates: start: 20140120, end: 20140124
  4. ASS [Suspect]
     Indication: AORTIC STENOSIS
     Route: 065
     Dates: start: 20140120, end: 20140124
  5. ASS [Suspect]
     Indication: ATRIAL FIBRILLATION
     Route: 065
     Dates: start: 20140120, end: 20140124

REACTIONS (4)
  - Osteonecrosis [Not Recovered/Not Resolved]
  - Synovitis [Unknown]
  - Joint effusion [Unknown]
  - Haemarthrosis [Unknown]
